FAERS Safety Report 12569176 (Version 3)
Quarter: 2016Q3

REPORT INFORMATION
  Report Type: Report from Study
  Country: US (occurrence: US)
  Receive Date: 20160719
  Receipt Date: 20160928
  Transmission Date: 20161109
  Serious: Yes (Hospitalization)
  Sender: FDA-Public Use
  Company Number: US-JNJFOC-20160711444

PATIENT
  Age: 18 Year
  Sex: Male
  Weight: 40.23 kg

DRUGS (46)
  1. REMICADE [Suspect]
     Active Substance: INFLIXIMAB
     Indication: INFLAMMATORY BOWEL DISEASE
     Dosage: HE WAS PRIMARILY USING FOR AUTOIMMUNE??NEUROPATHY (NONSERIOUS AE) AND IT DID NOT SEEM TO HELP
     Route: 042
     Dates: start: 20130731, end: 20140424
  2. GOLYTELY [Concomitant]
     Active Substance: POLYETHYLENE GLYCOL 3350\POTASSIUM CHLORIDE\SODIUM BICARBONATE\SODIUM CHLORIDE\SODIUM SULFATE ANHYDROUS
     Route: 065
  3. ZYRTEC [Concomitant]
     Active Substance: CETIRIZINE HYDROCHLORIDE
     Route: 065
  4. CLONIDINE. [Concomitant]
     Active Substance: CLONIDINE
     Route: 065
  5. UCERIS [Concomitant]
     Active Substance: BUDESONIDE
     Route: 065
  6. LEVALBUTEROL HYDROCHLORIDE. [Concomitant]
     Active Substance: LEVALBUTEROL HYDROCHLORIDE
     Route: 065
  7. POTASSIUM CHLORIDE. [Concomitant]
     Active Substance: POTASSIUM CHLORIDE
     Route: 065
  8. DEXTROSE IN WATER [Concomitant]
     Active Substance: DEXTROSE\WATER
     Route: 065
  9. REMICADE [Suspect]
     Active Substance: INFLIXIMAB
     Indication: INFLAMMATORY BOWEL DISEASE
     Dosage: DISCONTINUED DUE TO SUBJECT IN??REMISSION
     Route: 042
     Dates: start: 20050807, end: 20100507
  10. SELENIUM [Concomitant]
     Active Substance: SELENIUM
     Route: 065
  11. LABETALOL [Concomitant]
     Active Substance: LABETALOL\LABETALOL HYDROCHLORIDE
     Route: 065
  12. LINZESS [Concomitant]
     Active Substance: LINACLOTIDE
     Route: 065
  13. SODIUM CHLORIDE. [Concomitant]
     Active Substance: SODIUM CHLORIDE
     Route: 065
  14. TYLENOL [Concomitant]
     Active Substance: ACETAMINOPHEN
     Route: 065
  15. CARBOXYMETHYLCELLULOSE [Concomitant]
     Active Substance: CARBOXYMETHYLCELLULOSE
     Route: 065
  16. VITAMIN D [Concomitant]
     Active Substance: CHOLECALCIFEROL
     Route: 065
  17. ZOFRAN [Concomitant]
     Active Substance: ONDANSETRON HYDROCHLORIDE
     Route: 065
  18. MODAFINIL. [Concomitant]
     Active Substance: MODAFINIL
     Route: 065
  19. MIDODRINE [Concomitant]
     Active Substance: MIDODRINE
     Route: 065
  20. PENTASA [Concomitant]
     Active Substance: MESALAMINE
     Route: 065
  21. MELATONIN [Concomitant]
     Active Substance: MELATONIN
     Route: 065
  22. FIORICET [Concomitant]
     Active Substance: ACETAMINOPHEN\BUTALBITAL\CAFFEINE
     Route: 065
  23. NORMAL SALINE [Concomitant]
     Active Substance: SODIUM CHLORIDE
     Route: 065
  24. NALTREXONE [Concomitant]
     Active Substance: NALTREXONE
     Route: 065
  25. AZELASTINE [Concomitant]
     Active Substance: AZELASTINE
     Route: 065
  26. VITAMINE C [Concomitant]
     Active Substance: ASCORBIC ACID
     Route: 065
  27. EPIPEN [Concomitant]
     Active Substance: EPINEPHRINE
     Route: 065
  28. KLONOPIN [Concomitant]
     Active Substance: CLONAZEPAM
     Route: 065
  29. ALPHA LIPOIC ACID [Concomitant]
     Active Substance: .ALPHA.-LIPOIC ACID
     Route: 065
  30. UBIDECARENONE [Concomitant]
     Active Substance: UBIDECARENONE
     Route: 065
  31. VITAMIN E [Concomitant]
     Active Substance: .ALPHA.-TOCOPHEROL
     Route: 065
  32. GAVILYTE G [Concomitant]
     Active Substance: POLYETHYLENE GLYCOL 3350\POTASSIUM CHLORIDE\SODIUM BICARBONATE\SODIUM CHLORIDE\SODIUM SULFATE ANHYDROUS
     Route: 065
  33. NEXIUM [Concomitant]
     Active Substance: ESOMEPRAZOLE MAGNESIUM
     Route: 065
  34. PULMICORT TURBUHALER [Concomitant]
     Active Substance: BUDESONIDE
     Route: 065
  35. RIBOFLAVIN [Concomitant]
     Active Substance: RIBOFLAVIN
     Route: 065
  36. HEPARIN [Concomitant]
     Active Substance: HEPARIN SODIUM
     Route: 065
  37. CITROMA [Concomitant]
     Active Substance: MAGNESIUM CITRATE
     Route: 065
  38. BENADRYL [Concomitant]
     Active Substance: DIPHENHYDRAMINE HYDROCHLORIDE
     Route: 065
  39. MAGNESIUM OXIDE. [Concomitant]
     Active Substance: MAGNESIUM OXIDE
     Route: 065
  40. GLYCOLAX [Concomitant]
     Active Substance: POLYETHYLENE GLYCOL 3350
     Route: 065
  41. FLONASE [Concomitant]
     Active Substance: FLUTICASONE PROPIONATE
     Route: 065
  42. CALCIUM CARBONATE. [Concomitant]
     Active Substance: CALCIUM CARBONATE
     Route: 065
  43. ATENOLOL. [Concomitant]
     Active Substance: ATENOLOL
     Route: 065
  44. DEXTROSE. [Concomitant]
     Active Substance: DEXTROSE
     Route: 065
  45. ATARAX [Concomitant]
     Active Substance: HYDROXYZINE\HYDROXYZINE HYDROCHLORIDE
     Route: 065
  46. FOLIC ACID. [Concomitant]
     Active Substance: FOLIC ACID
     Route: 065

REACTIONS (1)
  - Device related infection [Recovered/Resolved]

NARRATIVE: CASE EVENT DATE: 20160709
